FAERS Safety Report 8233981-9 (Version None)
Quarter: 2012Q1

REPORT INFORMATION
  Report Type: 
  Country: None (occurrence: None)
  Receive Date: 20120322
  Receipt Date: 20120315
  Transmission Date: 20120608
  Serious: Yes (Other)
  Sender: FDA-Public Use
  Company Number: 2012-027019

PATIENT

DRUGS (1)
  1. ALKA-SELIZER ORIGINAL (ACETYLSALICYLIC ACID + SODIUM BICARBONATE + SOD [Suspect]
     Dosage: ORAL
     Route: 048

REACTIONS (1)
  - DRUG HYPERSENSITIVITY [None]
